FAERS Safety Report 21377395 (Version 1)
Quarter: 2022Q3

REPORT INFORMATION
  Report Type: Spontaneous
  Country: US (occurrence: None)
  Receive Date: 20220923
  Receipt Date: 20220923
  Transmission Date: 20221027
  Serious: Yes (Hospitalization, Other)
  Sender: FDA-Public Use
  Company Number: None

PATIENT
  Age: 57 Year
  Sex: Male

DRUGS (1)
  1. PREGABALIN [Suspect]
     Active Substance: PREGABALIN
     Dosage: 50 MG BID PO
     Route: 048
     Dates: start: 20211210, end: 20211219

REACTIONS (8)
  - Lip swelling [None]
  - Rash pruritic [None]
  - Rash [None]
  - Paraesthesia oral [None]
  - Dyspnoea [None]
  - Throat tightness [None]
  - Rash [None]
  - Urticaria [None]

NARRATIVE: CASE EVENT DATE: 20211219
